FAERS Safety Report 5907876-7 (Version None)
Quarter: 2008Q4

REPORT INFORMATION
  Report Type: 
  Country: None (occurrence: None)
  Receive Date: 20081003
  Receipt Date: 20080922
  Transmission Date: 20090506
  Serious: Yes (Life-Threatening, Other)
  Sender: FDA-Public Use
  Company Number: US-PFIZER INC-2008057001

PATIENT
  Sex: Male
  Weight: 109 kg

DRUGS (3)
  1. CHANTIX [Suspect]
     Indication: SMOKING CESSATION THERAPY
     Route: 048
     Dates: start: 20080601, end: 20080705
  2. CHANTIX [Suspect]
     Indication: TOBACCO ABUSE
  3. ALCOHOL [Suspect]

REACTIONS (10)
  - ABNORMAL BEHAVIOUR [None]
  - ADVERSE DRUG REACTION [None]
  - AGGRESSION [None]
  - DELIRIUM [None]
  - DERMATITIS CONTACT [None]
  - MEMORY IMPAIRMENT [None]
  - MOOD SWINGS [None]
  - PSYCHOTIC DISORDER [None]
  - SCREAMING [None]
  - SPEECH DISORDER [None]
